FAERS Safety Report 18581084 (Version 2)
Quarter: 2020Q4

REPORT INFORMATION
  Report Type: Spontaneous
  Country: US (occurrence: US)
  Receive Date: 20201204
  Receipt Date: 20201208
  Transmission Date: 20210114
  Serious: No
  Sender: FDA-Public Use
  Company Number: US-PFIZER INC-2019051960

PATIENT
  Age: 40 Year
  Sex: Male
  Weight: 117 kg

DRUGS (3)
  1. LYRICA [Suspect]
     Active Substance: PREGABALIN
     Indication: NEUROPATHY PERIPHERAL
     Dosage: 300 MG, 3X/DAY (TAKE 1 CAPSULE BY MOUTH 3 TIMES DAILY)
     Route: 048
     Dates: start: 2009
  2. LYRICA [Suspect]
     Active Substance: PREGABALIN
     Indication: NERVE INJURY
     Dosage: 300 MG, 3X/DAY (QUANTITY 90 /DAYS SUPPLY 30)
     Dates: start: 2009
  3. FENTANYL. [Concomitant]
     Active Substance: FENTANYL
     Indication: PAIN
     Dosage: UNK

REACTIONS (2)
  - Prescribed overdose [Unknown]
  - Anxiety [Unknown]

NARRATIVE: CASE EVENT DATE: 2009
